FAERS Safety Report 6150702 (Version 23)
Quarter: 2013Q2

REPORT INFORMATION
  Report Type: Spontaneous
  Country: US (occurrence: US)
  Receive Date: 20061020
  Receipt Date: 20130625
  Transmission Date: 20140414
  Serious: Yes (Death, Hospitalization, Other)
  Sender: FDA-Public Use
  Company Number: PHEH2006US12725

PATIENT
  Age: 83 Year
  Sex: Male
  Weight: 56.93 kg

DRUGS (38)
  1. ZOMETA [Suspect]
     Indication: BONE LOSS
     Dosage: 4 MG, QMO
     Route: 042
     Dates: start: 20040316, end: 20060307
  2. AREDIA [Suspect]
     Indication: METASTASES TO BONE
     Dates: start: 200311
  3. AREDIA [Suspect]
     Dosage: 90 MG
     Dates: start: 20040120, end: 20040217
  4. SELENIUM [Concomitant]
  5. VITAMIN E [Concomitant]
  6. TOPRAL [Concomitant]
  7. COUMADIN ^BOOTS^ [Concomitant]
  8. VIOXX [Concomitant]
  9. ARANESP [Concomitant]
  10. TAXOTERE [Concomitant]
     Route: 042
  11. PREDNISONE [Concomitant]
  12. CASODEX [Concomitant]
  13. RADIATION THERAPY [Concomitant]
     Dates: start: 200703, end: 200705
  14. METOPROLOL [Concomitant]
  15. PRILOSEC [Concomitant]
  16. DIGOXIN [Concomitant]
  17. NEURONTIN [Concomitant]
  18. ROCEPHIN [Concomitant]
     Route: 042
  19. CIPRO ^MILES^ [Concomitant]
  20. LEVAQUIN [Concomitant]
  21. DEXAMETHASONE [Concomitant]
  22. DIGITEK [Concomitant]
  23. OXYBUTYNIN [Concomitant]
  24. LASIX [Concomitant]
  25. VITAMIN D [Concomitant]
  26. COZAAR [Concomitant]
  27. FLUMED [Concomitant]
  28. NILANDRON [Concomitant]
  29. FLUTAMIDE [Concomitant]
  30. TOPROL XL [Concomitant]
  31. DYAZIDE [Concomitant]
  32. MIRALAX [Concomitant]
  33. DEMEROL [Concomitant]
     Dosage: 25 MG, UNK
     Route: 042
  34. GABAPENTIN [Concomitant]
     Indication: PARAESTHESIA
     Dosage: 100 MG, TID
  35. OMEPRAZOLE [Concomitant]
  36. SEPTRA [Concomitant]
  37. IMODIUM ^JANSSEN^ [Concomitant]
  38. CHOLESTYRAMINE [Concomitant]

REACTIONS (146)
  - Death [Fatal]
  - Cerebral infarction [Unknown]
  - Anaemia [Unknown]
  - Osteonecrosis of jaw [Unknown]
  - Injury [Unknown]
  - Pain [Unknown]
  - Anxiety [Unknown]
  - Physical disability [Unknown]
  - Bone disorder [Unknown]
  - Mastication disorder [Unknown]
  - Gingival recession [Unknown]
  - Toothache [Unknown]
  - Tooth abscess [Unknown]
  - Stomatitis [Unknown]
  - Syncope [Unknown]
  - Myelodysplastic syndrome [Unknown]
  - Pancytopenia [Unknown]
  - Urinary tract infection [Unknown]
  - Subdural haematoma [Recovering/Resolving]
  - Cholelithiasis [Unknown]
  - Retroperitoneal lymphadenopathy [Unknown]
  - Renal cyst [Unknown]
  - Conjunctival haemorrhage [Unknown]
  - Deafness [Unknown]
  - Rheumatoid arthritis [Unknown]
  - Tooth fracture [Unknown]
  - Oedema peripheral [Unknown]
  - Tremor [Unknown]
  - Neurosensory hypoacusis [Unknown]
  - Lung disorder [Unknown]
  - Atelectasis [Unknown]
  - Dehydration [Unknown]
  - Carotid bruit [Unknown]
  - Carotid artery disease [Unknown]
  - Atrial tachycardia [Unknown]
  - Atrial flutter [Unknown]
  - Ventricular extrasystoles [Unknown]
  - Sinus bradycardia [Unknown]
  - Blood pressure decreased [Unknown]
  - Atrial fibrillation [Unknown]
  - Aortic aneurysm [Unknown]
  - Mitral valve incompetence [Unknown]
  - Tricuspid valve incompetence [Unknown]
  - Nodule [Unknown]
  - Neuropathy peripheral [Unknown]
  - Musculoskeletal stiffness [Unknown]
  - Back pain [Unknown]
  - Blood calcium decreased [Unknown]
  - Blood chloride increased [Unknown]
  - Blood creatinine increased [Unknown]
  - Blood urea increased [Unknown]
  - Haematocrit decreased [Unknown]
  - Osteosclerosis [Unknown]
  - Arrhythmia [Unknown]
  - Hypoaesthesia [Unknown]
  - Gait disturbance [Unknown]
  - Gastritis [Unknown]
  - Pain in extremity [Unknown]
  - Penile swelling [Unknown]
  - Cellulitis [Unknown]
  - Scrotal pain [Unknown]
  - Scoliosis [Unknown]
  - Barrett^s oesophagus [Unknown]
  - Onychomycosis [Unknown]
  - Foot deformity [Unknown]
  - Lung infiltration [Unknown]
  - Aortic calcification [Unknown]
  - Oral pain [Unknown]
  - Mitral valve calcification [Unknown]
  - Dementia Alzheimer^s type [Unknown]
  - Urinary incontinence [Unknown]
  - Confusional state [Unknown]
  - Cerebral small vessel ischaemic disease [Unknown]
  - Coagulopathy [Unknown]
  - Peripheral vascular disorder [Unknown]
  - Metastases to bladder [Unknown]
  - Metastases to abdominal cavity [Unknown]
  - Tooth loss [Unknown]
  - Cerebral atrophy [Unknown]
  - Cerebellar atrophy [Unknown]
  - Encephalopathy [Unknown]
  - Blood disorder [Unknown]
  - Chronic obstructive pulmonary disease [Unknown]
  - Pulmonary hypertension [Unknown]
  - Hyperkalaemia [Unknown]
  - Hypernatraemia [Unknown]
  - Leukocytosis [Unknown]
  - Mental status changes [Unknown]
  - Psychotic disorder [Unknown]
  - Bacteraemia [Unknown]
  - Haemoglobin decreased [Unknown]
  - Lymphocyte count decreased [Unknown]
  - Mean cell haemoglobin decreased [Unknown]
  - Mean cell volume increased [Unknown]
  - Protein total decreased [Unknown]
  - Red blood cell count decreased [Unknown]
  - Red cell distribution width increased [Unknown]
  - White blood cell count decreased [Unknown]
  - Paraesthesia [Unknown]
  - Spinal osteoarthritis [Unknown]
  - Essential hypertension [Unknown]
  - Blood pressure systolic increased [Unknown]
  - Renal failure chronic [Unknown]
  - Large intestine polyp [Unknown]
  - Malignant neoplasm progression [Unknown]
  - Basal ganglion degeneration [Unknown]
  - Acute sinusitis [Unknown]
  - Pulmonary fibrosis [Unknown]
  - Gastric polyps [Unknown]
  - Gastroenteritis viral [Unknown]
  - Encephalomalacia [Unknown]
  - Hypoproteinaemia [Unknown]
  - Hyperalbuminaemia [Unknown]
  - Squamous cell carcinoma [Unknown]
  - Basal cell carcinoma [Unknown]
  - Seborrhoeic keratosis [Unknown]
  - Actinic keratosis [Unknown]
  - Xerosis [Unknown]
  - Skin atrophy [Unknown]
  - Skin ulcer [Unknown]
  - Coronary artery disease [Unknown]
  - Urinary retention [Unknown]
  - Pneumonia aspiration [Unknown]
  - Azotaemia [Unknown]
  - Sepsis [Unknown]
  - Parkinsonism [Unknown]
  - Meningioma [Unknown]
  - Fall [Unknown]
  - Contusion [Unknown]
  - Gastrooesophageal reflux disease [Unknown]
  - Failure to thrive [Unknown]
  - Respiratory failure [Unknown]
  - Dementia [Unknown]
  - Irritable bowel syndrome [Unknown]
  - Decubitus ulcer [Unknown]
  - Cerebral thrombosis [Unknown]
  - Dental caries [Unknown]
  - Bladder irritation [Unknown]
  - Cardiomegaly [Unknown]
  - Laceration [Unknown]
  - Wound haemorrhage [Unknown]
  - Wound [Unknown]
  - Dyspnoea exertional [Unknown]
  - Thoracic vertebral fracture [Unknown]
  - Venous insufficiency [Unknown]
  - Exposed bone in jaw [Unknown]
